FAERS Safety Report 17070886 (Version 1)
Quarter: 2019Q4

REPORT INFORMATION
  Report Type: Spontaneous
  Country: GR (occurrence: GR)
  Receive Date: 20191125
  Receipt Date: 20191125
  Transmission Date: 20200122
  Serious: Yes (Hospitalization, Other)
  Sender: FDA-Public Use
  Company Number: GR-PFIZER INC-2019501864

PATIENT
  Age: 48 Year
  Sex: Female

DRUGS (4)
  1. UROMITEXAN [Suspect]
     Active Substance: MESNA
     Indication: SARCOMA METASTATIC
     Dosage: 3000 MG/M2, CYCLIC (ON D1- D4)
     Route: 042
  2. FILGRASTIM [Suspect]
     Active Substance: FILGRASTIM
     Indication: SARCOMA METASTATIC
     Dosage: 48 MILLION IU, CYCLIC (D5-D12)
     Route: 058
  3. IFOSFAMIDE. [Suspect]
     Active Substance: IFOSFAMIDE
     Indication: SARCOMA METASTATIC
     Dosage: 3000 MG/M2, EVERY 3 WEEKS (ON D1-D3)
     Route: 042
  4. DOXORUBICIN HCL [Suspect]
     Active Substance: DOXORUBICIN HYDROCHLORIDE
     Indication: SARCOMA METASTATIC
     Dosage: 25 MG/M2, CYCLIC (ON D1)
     Route: 042

REACTIONS (8)
  - Pyelonephritis [Unknown]
  - Chronic kidney disease [Unknown]
  - Anaemia [Unknown]
  - Febrile neutropenia [Unknown]
  - Off label use [Unknown]
  - Thrombocytopenia [Unknown]
  - Product use in unapproved indication [Unknown]
  - Drug intolerance [Unknown]
